FAERS Safety Report 8594776-X (Version None)
Quarter: 2012Q3

REPORT INFORMATION
  Report Type: 
  Country: None (occurrence: None)
  Receive Date: 20120815
  Receipt Date: 20120802
  Transmission Date: 20120928
  Serious: Yes (Hospitalization, Other)
  Sender: FDA-Public Use
  Company Number: JP-SHIRE-SPV1-2010-01778

PATIENT
  Sex: Female

DRUGS (33)
  1. CALCIUM CARBONATE [Suspect]
     Dosage: 3000 MG, 1X/DAY:QD
     Route: 048
     Dates: start: 20110601, end: 20110603
  2. CALCIUM CARBONATE [Suspect]
     Dosage: 1500 MG, UNKNOWN
     Route: 048
     Dates: start: 20110804, end: 20111207
  3. CALCITRIOL [Suspect]
     Dosage: 1.5 UG, 1X/DAY:QD
     Route: 048
     Dates: start: 20091230, end: 20100513
  4. ALLOPURINOL [Concomitant]
     Indication: PRODUCT USED FOR UNKNOWN INDICATION
     Dosage: 100 MG, UNKNOWN
     Route: 048
  5. CALFINA [Concomitant]
     Indication: PRODUCT USED FOR UNKNOWN INDICATION
     Dosage: 0.25 ?G, 1X/DAY:QD
     Route: 048
     Dates: start: 20100903, end: 20101214
  6. FULSTAN [Concomitant]
     Indication: PRODUCT USED FOR UNKNOWN INDICATION
     Dosage: 0.3 ?G, 1X/DAY:QD
     Route: 048
     Dates: start: 20101215, end: 20110405
  7. LANTHANUM CARBONATE [Suspect]
     Indication: HYPERPHOSPHATAEMIA
     Dosage: 750 MG, 1X/DAY:QD
     Route: 048
     Dates: start: 20091203
  8. SIMVASTATIN [Concomitant]
     Indication: PRODUCT USED FOR UNKNOWN INDICATION
     Dosage: 5 MG, UNKNOWN
     Route: 048
  9. ISOSORBIDE MONONITRATE [Concomitant]
     Indication: PRODUCT USED FOR UNKNOWN INDICATION
     Dosage: 40 MG, UNKNOWN
     Route: 048
  10. FULSTAN [Concomitant]
     Dosage: 0.9 ?G, UNKNOWN
     Route: 048
     Dates: start: 20120315, end: 20120404
  11. ROCALTROL [Concomitant]
     Indication: PRODUCT USED FOR UNKNOWN INDICATION
     Dosage: .5 UG, UNKNOWN
     Route: 048
     Dates: start: 20091021, end: 20091103
  12. DIOVAN [Concomitant]
     Indication: PRODUCT USED FOR UNKNOWN INDICATION
     Dosage: 80 MG, UNKNOWN
     Route: 048
  13. AMLODIPINE [Concomitant]
     Indication: PRODUCT USED FOR UNKNOWN INDICATION
     Dosage: 2.5 MG, UNKNOWN
     Route: 048
  14. FULSTAN [Concomitant]
     Dosage: 0.6 ?G, UNKNOWN
     Route: 048
     Dates: start: 20110804, end: 20110914
  15. CALCITRIOL [Suspect]
     Dosage: 1.0 ?G, UNKNOWN
     Route: 048
     Dates: start: 20120405
  16. ASPIRIN [Concomitant]
     Indication: PRODUCT USED FOR UNKNOWN INDICATION
     Dosage: 100 MG, UNKNOWN
     Route: 048
  17. CALCIUM CARBONATE [Suspect]
     Indication: HYPERPHOSPHATAEMIA
     Dosage: 1500 MG, 1X/DAY:QD
     Route: 048
     Dates: start: 20091203, end: 20100513
  18. CALCIUM CARBONATE [Suspect]
     Dosage: 1500 MG, 1X/DAY:QD
     Route: 048
     Dates: start: 20100602, end: 20110531
  19. CALCITRIOL [Suspect]
     Indication: PRODUCT USED FOR UNKNOWN INDICATION
     Dosage: .75 UG, 1X/DAY:QD
     Route: 048
     Dates: start: 20091202
  20. ERSIBON [Concomitant]
     Indication: PRODUCT USED FOR UNKNOWN INDICATION
     Dosage: .25 UG, UNKNOWN
     Route: 048
     Dates: start: 20080911, end: 20091020
  21. ERSIBON [Concomitant]
     Dosage: 0.25 ?G, UNKNOWN
     Route: 048
     Dates: start: 20100728, end: 20100902
  22. ROCALTROL [Concomitant]
     Dosage: 1 UG, UNKNOWN
     Route: 048
     Dates: start: 20091104, end: 20091201
  23. LANTHANUM CARBONATE [Suspect]
     Dosage: 1500 MG, 1X/DAY:QD
     Route: 048
     Dates: start: 20091112, end: 20091202
  24. CALCIUM CARBONATE [Suspect]
     Dosage: 3000 MG, UNKNOWN
     Route: 048
     Dates: start: 20111208
  25. CEFAZOLIN SODIUM [Concomitant]
     Indication: PRODUCT USED FOR UNKNOWN INDICATION
     Dosage: 1.5 G, UNKNOWN
     Route: 048
  26. OMEPRAZOLE [Concomitant]
     Indication: PRODUCT USED FOR UNKNOWN INDICATION
     Dosage: 10 MG, UNKNOWN
     Route: 048
  27. FULSTAN [Concomitant]
     Dosage: 0.6 ?G, UNKNOWN
     Route: 048
     Dates: start: 20111222, end: 20120314
  28. LANTHANUM CARBONATE [Suspect]
     Dosage: 750 MG, 1X/DAY:QD
     Route: 048
     Dates: start: 20090616, end: 20091111
  29. REBAMIPIDE [Concomitant]
     Indication: PRODUCT USED FOR UNKNOWN INDICATION
     Dosage: 300 MG, UNKNOWN
     Route: 048
  30. BISOPROLOL FUMARATE [Concomitant]
     Indication: PRODUCT USED FOR UNKNOWN INDICATION
     Dosage: 10 MG, UNKNOWN
     Route: 048
  31. AMOBAN [Concomitant]
     Indication: PRODUCT USED FOR UNKNOWN INDICATION
     Dosage: 7.5 MG, UNKNOWN
     Route: 048
  32. FULSTAN [Concomitant]
     Dosage: 0.3 ?G, 1X/DAY:QD
     Route: 048
     Dates: start: 20110406, end: 20110803
  33. FULSTAN [Concomitant]
     Dosage: 1.2 ?G, UNKNOWN
     Route: 048
     Dates: start: 20110915, end: 20111108

REACTIONS (10)
  - NAUSEA [None]
  - GASTROENTERITIS RADIATION [None]
  - CHOLELITHIASIS [None]
  - GASTROINTESTINAL HAEMORRHAGE [None]
  - HYPERCALCAEMIA [None]
  - HYPERPHOSPHATAEMIA [None]
  - DIZZINESS [None]
  - HAEMORRHAGIC ANAEMIA [None]
  - ANAEMIA [None]
  - IRON DEFICIENCY ANAEMIA [None]
